FAERS Safety Report 5731722-8 (Version None)
Quarter: 2008Q2

REPORT INFORMATION
  Report Type: 
  Country: None (occurrence: None)
  Receive Date: 20080506
  Receipt Date: 20080506
  Transmission Date: 20081010
  Serious: Yes (Other)
  Sender: FDA-Public Use
  Company Number: None

PATIENT
  Age: 68 Year
  Sex: Male
  Weight: 97.3873 kg

DRUGS (7)
  1. RANOLAZINE [Suspect]
     Indication: ANGINA PECTORIS
     Dosage: 500 MG BID PO
     Route: 048
     Dates: end: 20080420
  2. RANEXA [Concomitant]
  3. SOTALOL HCL [Concomitant]
  4. ATENOLOL [Concomitant]
  5. PROTONIX [Concomitant]
  6. QUINAPRIL [Concomitant]
  7. CIPROFLOXACIN HCL [Concomitant]

REACTIONS (1)
  - TORSADE DE POINTES [None]
